FAERS Safety Report 4876598-6 (Version None)
Quarter: 2005Q4

REPORT INFORMATION
  Report Type: 
  Country: None (occurrence: None)
  Receive Date: 20051206
  Receipt Date: 20051021
  Transmission Date: 20060501
  Serious: No
  Sender: FDA-Public Use
  Company Number: USA0510111544

PATIENT
  Age: 29 Year
  Sex: Female

DRUGS (3)
  1. CYMBALTA [Suspect]
     Indication: DEPRESSION
     Dosage: 30 MG DAY
     Dates: start: 20051008
  2. TEGRETOL [Concomitant]
  3. BENZODIAZEPINE [Concomitant]

REACTIONS (3)
  - DEPRESSION [None]
  - DEPRESSION SUICIDAL [None]
  - SUICIDAL IDEATION [None]
